FAERS Safety Report 6899484-9 (Version None)
Quarter: 2010Q3

REPORT INFORMATION
  Report Type: 
  Country: None (occurrence: None)
  Receive Date: 20100803
  Receipt Date: 20100726
  Transmission Date: 20110219
  Serious: Yes (Hospitalization)
  Sender: FDA-Public Use
  Company Number: US-BIOGENIDEC-2009BI010873

PATIENT
  Age: 51 Year
  Sex: Male
  Weight: 53 kg

DRUGS (4)
  1. AVONEX [Suspect]
     Indication: MULTIPLE SCLEROSIS
     Route: 030
     Dates: start: 20080101, end: 20100101
  2. AVONEX [Suspect]
     Route: 030
     Dates: start: 20080101, end: 20100101
  3. AVONEX [Suspect]
     Route: 030
     Dates: start: 20010401, end: 20030801
  4. CELL CEPT [Concomitant]
     Indication: MULTIPLE SCLEROSIS

REACTIONS (5)
  - BLOOD COUNT ABNORMAL [None]
  - CHILLS [None]
  - LIVER FUNCTION TEST ABNORMAL [None]
  - OESOPHAGEAL CARCINOMA [None]
  - WEIGHT DECREASED [None]
